FAERS Safety Report 6157397-4 (Version None)
Quarter: 2009Q2

REPORT INFORMATION
  Report Type: 
  Country: None (occurrence: None)
  Receive Date: 20090416
  Receipt Date: 20090407
  Transmission Date: 20091009
  Serious: Yes (Death)
  Sender: FDA-Public Use
  Company Number: NO-PFIZER INC-2009194609

PATIENT

DRUGS (2)
  1. AZITROMAX [Suspect]
     Indication: RESPIRATORY TRACT INFECTION
     Dosage: 500 MG, 1X/DAY
     Route: 048
     Dates: start: 20090227, end: 20090301
  2. SOLVIPECT COMP [Concomitant]
     Indication: RESPIRATORY TRACT INFECTION
     Dosage: UNK
     Route: 048
     Dates: start: 20090227, end: 20090301

REACTIONS (3)
  - CARDIAC ARREST [None]
  - DEATH [None]
  - PALPITATIONS [None]
